FAERS Safety Report 10923449 (Version 2)
Quarter: 2015Q2

REPORT INFORMATION
  Report Type: Report from Study
  Country: US (occurrence: US)
  Receive Date: 20150318
  Receipt Date: 20150420
  Transmission Date: 20150821
  Serious: Yes (Death)
  Sender: FDA-Public Use
  Company Number: US-ROCHE-1552924

PATIENT
  Sex: Male
  Weight: 52.21 kg

DRUGS (3)
  1. OXALIPLATIN. [Concomitant]
     Active Substance: OXALIPLATIN
     Indication: LYMPHOMA
     Route: 042
     Dates: start: 20140822, end: 20140918
  2. GEMZAR [Concomitant]
     Active Substance: GEMCITABINE HYDROCHLORIDE
     Indication: LYMPHOMA
     Route: 042
     Dates: start: 20140822, end: 20140918
  3. RITUXAN [Suspect]
     Active Substance: RITUXIMAB
     Indication: LYMPHOMA
     Route: 042
     Dates: start: 20140128, end: 20141023

REACTIONS (1)
  - Lymphoma [Fatal]
